FAERS Safety Report 10395008 (Version 4)
Quarter: 2015Q3

REPORT INFORMATION
  Report Type: Spontaneous
  Country: BR (occurrence: BR)
  Receive Date: 20140820
  Receipt Date: 20150714
  Transmission Date: 20151125
  Serious: Yes (Other)
  Sender: FDA-Public Use
  Company Number: BR-AMGEN-BRASP2014063372

PATIENT
  Age: 61 Year
  Sex: Male
  Weight: 74 kg

DRUGS (4)
  1. MESALAZINE [Concomitant]
     Active Substance: MESALAMINE
     Indication: COLITIS ULCERATIVE
     Dosage: 1600 MG (2 TABLETS OF 800MG) DAILY
  2. SIMVASTATIN. [Concomitant]
     Active Substance: SIMVASTATIN
     Indication: BLOOD CHOLESTEROL INCREASED
     Dosage: 1 TABLET OF 20 MG DAILY
     Dates: start: 2010
  3. ENBREL [Suspect]
     Active Substance: ETANERCEPT
     Indication: RHEUMATOID ARTHRITIS
     Dosage: 50 MG, ONCE A WEEK
     Route: 058
     Dates: start: 20140730
  4. MESACOL /00747601/ [Suspect]
     Active Substance: MESALAMINE
     Indication: COLITIS ULCERATIVE
     Dosage: UNK
     Route: 065
     Dates: start: 1995

REACTIONS (4)
  - Injection site pruritus [Not Recovered/Not Resolved]
  - Pruritus generalised [Unknown]
  - Injection site erythema [Not Recovered/Not Resolved]
  - Urethral obstruction [Unknown]

NARRATIVE: CASE EVENT DATE: 20140918
